FAERS Safety Report 7544458-8 (Version None)
Quarter: 2011Q2

REPORT INFORMATION
  Report Type: 
  Country: None (occurrence: None)
  Receive Date: 20110613
  Receipt Date: 20081225
  Transmission Date: 20111010
  Serious: Yes (Death)
  Sender: FDA-Public Use
  Company Number: PHHY2008JP23951

PATIENT
  Sex: Male
  Weight: 62 kg

DRUGS (6)
  1. RINDERON-VG [Concomitant]
     Dosage: 1 G, UNK
     Dates: start: 20071019
  2. ACTOS [Concomitant]
     Dosage: 30 MG, UNK
     Route: 048
     Dates: start: 20071115
  3. MAGNESIUM SULFATE [Concomitant]
     Dosage: 990 MG, UNK
     Route: 048
     Dates: start: 20071115
  4. CRESTOR [Concomitant]
     Dosage: 2.5 MG, UNK
     Route: 048
     Dates: start: 20071019
  5. AMARYL [Concomitant]
     Dosage: 1 MG, UNK
     Route: 048
     Dates: start: 20071019
  6. VALSARTAN [Suspect]
     Indication: HYPERTENSION
     Dosage: 80 MG, QD
     Route: 048
     Dates: start: 20071019

REACTIONS (1)
  - DEATH [None]
